FAERS Safety Report 6978347-4 (Version None)
Quarter: 2010Q3

REPORT INFORMATION
  Report Type: 
  Country: None (occurrence: None)
  Receive Date: 20100913
  Receipt Date: 20100830
  Transmission Date: 20110219
  Serious: Yes (Hospitalization)
  Sender: FDA-Public Use
  Company Number: PHHY2010CN59296

PATIENT
  Age: 8 Year
  Sex: Male

DRUGS (3)
  1. TRILEPTAL [Suspect]
     Indication: EPILEPSY
     Dosage: 225 MG, BID
     Route: 048
     Dates: start: 20081115, end: 20081214
  2. VALPROATE SODIUM [Concomitant]
     Dosage: SUSTAINED RELEASE TABLETS 0.25 G/TIME, TWICE DAILY
     Route: 048
  3. VALPROATE SODIUM [Concomitant]
     Dosage: 0.25 G IN THE MORNING AND 0.5 G IN THE EVENING

REACTIONS (8)
  - BREATH SOUNDS ABNORMAL [None]
  - DRUG HYPERSENSITIVITY [None]
  - EPILEPSY [None]
  - GINGIVAL OEDEMA [None]
  - MOUTH ULCERATION [None]
  - PYREXIA [None]
  - RASH MACULO-PAPULAR [None]
  - UPPER RESPIRATORY TRACT INFECTION [None]
